FAERS Safety Report 20575244 (Version 1)
Quarter: 2022Q1

REPORT INFORMATION
  Report Type: Spontaneous
  Country: IN (occurrence: IN)
  Receive Date: 20220310
  Receipt Date: 20220310
  Transmission Date: 20220424
  Serious: Yes (Hospitalization)
  Sender: FDA-Public Use
  Company Number: IN-LUOXINA-LUOX-PHC-2022-MAR-02-LIT-0007

PATIENT
  Age: 3 Day
  Sex: Male
  Weight: 2.7 kg

DRUGS (1)
  1. LEVALBUTEROL INHALATION SOLUTION [Suspect]
     Active Substance: LEVALBUTEROL HYDROCHLORIDE
     Indication: Product used for unknown indication
     Route: 065

REACTIONS (4)
  - Overdose [Unknown]
  - Medication error [Unknown]
  - Tachycardia [Recovered/Resolved]
  - Electrocardiogram QT prolonged [Recovered/Resolved]
